FAERS Safety Report 4665170-9 (Version None)
Quarter: 2005Q2

REPORT INFORMATION
  Report Type: 
  Country: None (occurrence: None)
  Receive Date: 20050517
  Receipt Date: 20050505
  Transmission Date: 20051028
  Serious: Yes (Death)
  Sender: FDA-Public Use
  Company Number: 2005071775

PATIENT
  Sex: Female

DRUGS (4)
  1. PREDNISONE [Suspect]
     Indication: ILL-DEFINED DISORDER
  2. IPRATROPIUM BROMIDE [Suspect]
     Indication: ILL-DEFINED DISORDER
     Dosage: INHALATION
     Route: 055
  3. SALBUTAMOL (SALBUTAMOL) [Suspect]
     Indication: ILL-DEFINED DISORDER
     Dosage: INHALATION
     Route: 055
  4. ALENDRONATE SODIUM [Suspect]
     Indication: ILL-DEFINED DISORDER

REACTIONS (4)
  - BRONCHITIS ACUTE [None]
  - CARDIAC FAILURE [None]
  - CHRONIC OBSTRUCTIVE AIRWAYS DISEASE EXACERBATED [None]
  - INFECTION [None]
